FAERS Safety Report 22597709 (Version 3)
Quarter: 2023Q2

REPORT INFORMATION
  Report Type: Spontaneous
  Country: TH (occurrence: TH)
  Receive Date: 20230614
  Receipt Date: 20230626
  Transmission Date: 20230721
  Serious: Yes (Other)
  Sender: FDA-Public Use
  Company Number: TH-ORGANON-O2306THA001552

PATIENT
  Sex: Female
  Weight: 50.5 kg

DRUGS (7)
  1. ETONOGESTREL [Suspect]
     Active Substance: ETONOGESTREL
     Dosage: 1 IMPLANT
     Route: 059
     Dates: start: 20230516, end: 20230613
  2. ISONIAZID [Concomitant]
     Active Substance: ISONIAZID
     Indication: Tuberculosis
     Dosage: TOTAL DAILY DOSAGE: 2 MONTHS, STOP DATE: NOWDAY
     Route: 048
     Dates: start: 20221216, end: 20230213
  3. ISONIAZID [Concomitant]
     Active Substance: ISONIAZID
     Dosage: UNK
     Route: 048
     Dates: start: 20230213, end: 20230616
  4. RIFAMPIN [Concomitant]
     Active Substance: RIFAMPIN
     Indication: Tuberculosis
     Dosage: TOTAL DAILY DOSAGE: 2 MONTHS, STOP DATE: NOWDAY
     Route: 048
     Dates: start: 20221216, end: 20230213
  5. RIFAMPIN [Concomitant]
     Active Substance: RIFAMPIN
     Dosage: UNK
     Route: 048
     Dates: start: 20230213, end: 20230616
  6. ETHAMBUTOL HYDROCHLORIDE [Concomitant]
     Active Substance: ETHAMBUTOL HYDROCHLORIDE
     Indication: Tuberculosis
     Dosage: TOTAL DAILY DOSAGE: 2 MONTHS, STOP DATE: NOWDAY
     Route: 048
     Dates: start: 20221216, end: 20230213
  7. PYRAZINAMIDE [Concomitant]
     Active Substance: PYRAZINAMIDE
     Indication: Tuberculosis
     Dosage: TOTAL DAILY DOSAGE: 2 MONTHS, STOP DATE: NOWDAY
     Route: 048
     Dates: start: 20221216, end: 20230213

REACTIONS (3)
  - Pregnancy with implant contraceptive [Not Recovered/Not Resolved]
  - Unintended pregnancy [Not Recovered/Not Resolved]
  - Menstruation irregular [Unknown]

NARRATIVE: CASE EVENT DATE: 20230101
